FAERS Safety Report 24077714 (Version 1)
Quarter: 2024Q3

REPORT INFORMATION
  Report Type: Spontaneous
  Country: AT (occurrence: AT)
  Receive Date: 20240711
  Receipt Date: 20240711
  Transmission Date: 20241017
  Serious: No
  Sender: PIERRE FABRE MEDICAMENT
  Company Number: AT-PFM-2023-03260

PATIENT
  Age: 5 Month
  Sex: Female

DRUGS (1)
  1. PROPRANOLOL [Suspect]
     Active Substance: PROPRANOLOL HYDROCHLORIDE
     Indication: Ulcerated haemangioma
     Dosage: 1 MG/KG, BID (2/DAY)
     Route: 048

REACTIONS (3)
  - Skin ulcer [Unknown]
  - Product use issue [Unknown]
  - Off label use [Unknown]
